FAERS Safety Report 6814698-1 (Version None)
Quarter: 2010Q3

REPORT INFORMATION
  Report Type: 
  Country: None (occurrence: None)
  Receive Date: 20100702
  Receipt Date: 20100701
  Transmission Date: 20110219
  Serious: Yes (Hospitalization)
  Sender: FDA-Public Use
  Company Number: B0661769A

PATIENT
  Sex: Male
  Weight: 17 kg

DRUGS (9)
  1. FORTUM [Suspect]
     Indication: PRODUCT USED FOR UNKNOWN INDICATION
     Route: 042
     Dates: start: 20100525, end: 20100531
  2. FLAGYL [Suspect]
     Indication: PRODUCT USED FOR UNKNOWN INDICATION
     Dosage: 107MG THREE TIMES PER DAY
     Route: 042
     Dates: start: 20100511, end: 20100531
  3. VANCOMYCIN HCL [Suspect]
     Indication: PRODUCT USED FOR UNKNOWN INDICATION
     Route: 042
     Dates: start: 20100514, end: 20100531
  4. GENTAMICIN [Suspect]
     Indication: PRODUCT USED FOR UNKNOWN INDICATION
     Route: 042
     Dates: start: 20100511, end: 20100527
  5. CLAFORAN [Concomitant]
     Indication: PRODUCT USED FOR UNKNOWN INDICATION
     Dosage: 280MG THREE TIMES PER DAY
     Route: 042
     Dates: start: 20100511, end: 20100524
  6. TRIFLUCAN [Concomitant]
     Route: 065
     Dates: start: 20100528
  7. NALBUPHINE [Concomitant]
     Indication: PAIN
     Route: 065
  8. PERFALGAN [Concomitant]
     Indication: PAIN
     Route: 065
  9. NEXIUM [Concomitant]
     Indication: PRODUCT USED FOR UNKNOWN INDICATION
     Route: 065
     Dates: start: 20100501

REACTIONS (2)
  - LEUKOPENIA [None]
  - NEUTROPENIA [None]
